FAERS Safety Report 18816831 (Version 1)
Quarter: 2021Q1

REPORT INFORMATION
  Report Type: Spontaneous
  Country: ES (occurrence: ES)
  Receive Date: 20210201
  Receipt Date: 20210201
  Transmission Date: 20210419
  Serious: Yes (Other)
  Sender: FDA-Public Use
  Company Number: ES-009507513-2101ESP011259

PATIENT
  Age: 30 Year
  Sex: Female

DRUGS (1)
  1. IMPLANON NXT [Suspect]
     Active Substance: ETONOGESTREL
     Indication: CONTRACEPTION
     Dosage: 1 IMPLANT
     Route: 059
     Dates: start: 201909

REACTIONS (5)
  - Hydrosalpinx [Unknown]
  - Abortion of ectopic pregnancy [Unknown]
  - Ectopic pregnancy with contraceptive device [Recovered/Resolved]
  - Unintended pregnancy [Recovered/Resolved]
  - Ovarian cyst [Unknown]

NARRATIVE: CASE EVENT DATE: 2020
